FAERS Safety Report 6748178-9 (Version None)
Quarter: 2010Q2

REPORT INFORMATION
  Report Type: 
  Country: None (occurrence: None)
  Receive Date: 20100531
  Receipt Date: 20100516
  Transmission Date: 20101027
  Serious: Yes (Hospitalization, Other)
  Sender: FDA-Public Use
  Company Number: PHHY2010DE21813

PATIENT
  Sex: Female
  Weight: 82 kg

DRUGS (16)
  1. NO TREATMENT RECEIVED NOMED [Suspect]
  2. EXFORGE [Suspect]
     Dosage: 1 DF, QD
     Route: 048
     Dates: start: 20090805
  3. METOPROLOL TARTRATE [Suspect]
     Dosage: 50 MG, QD
     Route: 048
     Dates: start: 20090805
  4. ASPIRIN [Suspect]
     Indication: STENT PLACEMENT
     Dosage: 100 MG, QD
     Route: 048
     Dates: start: 20090805
  5. ANGIOTENSIN II ANTAGONISTS [Concomitant]
     Dosage: UNK
  6. ANGIOTENSIN II ANTAGONISTS [Concomitant]
     Dosage: UNK
  7. BETA BLOCKING AGENTS [Concomitant]
     Dosage: UNK
  8. DIURETICS [Concomitant]
     Dosage: UNK
  9. SIMVASTATIN [Concomitant]
     Dosage: 20 MG, UNK
     Route: 048
     Dates: start: 20090805
  10. PANTOPRAZOLE [Concomitant]
     Dosage: 20 MG, UNK
     Route: 048
     Dates: start: 20090805
  11. CALCIMAGON-D3 [Concomitant]
     Dosage: UNK
     Route: 048
     Dates: start: 20090805
  12. ACTONEL [Concomitant]
     Dosage: 35 MG, UNK
     Route: 048
     Dates: start: 20090805
  13. METHOTREXATE [Concomitant]
     Dosage: 5 MG, UNK
     Route: 048
     Dates: start: 20090805
  14. FOLSAN [Concomitant]
     Dosage: 10 MG, UNK
     Route: 048
     Dates: start: 20090805
  15. PREDNISONE [Concomitant]
     Dosage: 5 MG, UNK
     Route: 048
     Dates: start: 20090805
  16. CALCIUM CHANNEL BLOCKERS [Concomitant]
     Dosage: UNK
     Dates: start: 20090804

REACTIONS (4)
  - BLOOD GLUCOSE INCREASED [None]
  - BLOOD PRESSURE INCREASED [None]
  - LEFT VENTRICULAR HYPERTROPHY [None]
  - ORTHOSTATIC INTOLERANCE [None]
